FAERS Safety Report 9967382 (Version 2)
Quarter: 2014Q1

REPORT INFORMATION
  Report Type: Report from Study
  Country: US (occurrence: US)
  Receive Date: 20140305
  Receipt Date: 20140305
  Transmission Date: 20141002
  Serious: No
  Sender: FDA-Public Use
  Company Number: US-ABBVIE-13P-163-1132226-00

PATIENT
  Age: 49 Year
  Sex: Female

DRUGS (12)
  1. HUMIRA [Suspect]
     Indication: RHEUMATOID ARTHRITIS
     Dosage: INITIAL DOSE
     Dates: start: 20130728
  2. WARFARIN [Suspect]
     Indication: FACTOR V LEIDEN MUTATION
     Dosage: 8-10MG EVERY DAY
  3. WARFARIN [Suspect]
     Dates: start: 20130808, end: 20130808
  4. WARFARIN [Suspect]
     Dates: start: 20130809, end: 20130809
  5. WARFARIN [Suspect]
  6. COPAXONE [Concomitant]
     Indication: MULTIPLE SCLEROSIS
     Route: 050
  7. PERCOCET [Concomitant]
     Indication: PAIN
  8. SAVELLA [Concomitant]
     Indication: FIBROMYALGIA
  9. CLONAZEPAM [Concomitant]
     Indication: RESTLESS LEGS SYNDROME
  10. TRIAMTERENE AND HYDROCHLOROTHIAZID [Concomitant]
     Indication: OEDEMA
     Dosage: 37.5/2.5
  11. AMRIX [Concomitant]
     Indication: PAIN
  12. TRIAZOLAM [Concomitant]
     Indication: INSOMNIA

REACTIONS (1)
  - Drug ineffective [Recovering/Resolving]
